FAERS Safety Report 15649982 (Version 3)
Quarter: 2021Q2

REPORT INFORMATION
  Report Type: Report from Study
  Country: None (occurrence: JP)
  Receive Date: 20181123
  Receipt Date: 20210605
  Transmission Date: 20210716
  Serious: Yes (Hospitalization)
  Sender: FDA-Public Use
  Company Number: JP-ABBVIE-18S-087-2560156-00

PATIENT
  Age: 61 Year
  Sex: Male
  Weight: 55 kg

DRUGS (8)
  1. DUODOPA [Suspect]
     Active Substance: CARBIDOPA\LEVODOPA
     Dosage: MD: 11 ML?CD: 1.8 ML/HR X 16 HRS
     Route: 050
     Dates: start: 20171213, end: 20171220
  2. DUODOPA [Suspect]
     Active Substance: CARBIDOPA\LEVODOPA
     Dosage: MD: 11 ML?CD: 2.3 ML/HR X 16 HRS
     Route: 050
     Dates: start: 20171227
  3. ISTRADEFYLLINE [Concomitant]
     Active Substance: ISTRADEFYLLINE
     Indication: PARKINSON^S DISEASE
     Route: 048
  4. ZONISAMIDE. [Concomitant]
     Active Substance: ZONISAMIDE
     Indication: PARKINSON^S DISEASE
     Route: 048
  5. PIOGLITAZONE HYDROCHLORIDE. [Concomitant]
     Active Substance: PIOGLITAZONE HYDROCHLORIDE
     Indication: PRODUCT USED FOR UNKNOWN INDICATION
     Route: 048
  6. DUODOPA [Suspect]
     Active Substance: CARBIDOPA\LEVODOPA
     Dosage: MD: 11 ML?CD: 2 ML/HR X 16 HRS?ED: 1.0 ML/UNIT X 1
     Route: 050
     Dates: start: 20171221, end: 20171226
  7. CARMELLOSE SODIUM [Suspect]
     Active Substance: CARBOXYMETHYLCELLULOSE SODIUM
     Indication: PRODUCT USED FOR UNKNOWN INDICATION
     Route: 065
  8. DUODOPA [Suspect]
     Active Substance: CARBIDOPA\LEVODOPA
     Indication: PARKINSON^S DISEASE
     Route: 050
     Dates: start: 20171206

REACTIONS (7)
  - Device dislocation [Unknown]
  - Posture abnormal [Unknown]
  - Constipation [Unknown]
  - Stoma site inflammation [Unknown]
  - Decreased appetite [Unknown]
  - Salivary hypersecretion [Unknown]
  - Stoma site pain [Unknown]

NARRATIVE: CASE EVENT DATE: 201801
